FAERS Safety Report 18651592 (Version 1)
Quarter: 2020Q4

REPORT INFORMATION
  Report Type: Spontaneous
  Country: US (occurrence: US)
  Receive Date: 20201223
  Receipt Date: 20201223
  Transmission Date: 20210114
  Serious: No
  Sender: FDA-Public Use
  Company Number: US-ELI_LILLY_AND_COMPANY-US202012001887

PATIENT
  Age: 77 Year
  Sex: Female

DRUGS (7)
  1. GLIMEPIRIDE. [Concomitant]
     Active Substance: GLIMEPIRIDE
     Indication: DIABETES MELLITUS
     Dosage: 4 MG, BID
  2. HUMULIN 70/30 [Suspect]
     Active Substance: INSULIN HUMAN
     Indication: DIABETES MELLITUS
     Dosage: UNK UNK, UNKNOWN
     Route: 058
  3. HUMIRA [Concomitant]
     Active Substance: ADALIMUMAB
     Indication: ARTHRITIS
     Dosage: 40 MG, OTHER (ONCE EVERY 3 WEEKS)
  4. METFORMIN [Concomitant]
     Active Substance: METFORMIN HYDROCHLORIDE
     Indication: DIABETES MELLITUS
     Dosage: 1000 MG, BID
  5. TRULICITY [Suspect]
     Active Substance: DULAGLUTIDE
     Dosage: 1.5 MG, UNKNOWN
     Route: 058
  6. TRULICITY [Suspect]
     Active Substance: DULAGLUTIDE
     Indication: TYPE 2 DIABETES MELLITUS
     Dosage: 0.75 MG, UNKNOWN
     Route: 058
     Dates: start: 201911
  7. LANTUS [Concomitant]
     Active Substance: INSULIN GLARGINE
     Indication: DIABETES MELLITUS
     Dosage: 60 U, DAILY

REACTIONS (8)
  - Decreased appetite [Unknown]
  - Abdominal distension [Unknown]
  - Hepatic steatosis [Unknown]
  - Hepatic enzyme increased [Unknown]
  - Abdominal pain [Unknown]
  - Abdominal discomfort [Unknown]
  - Insomnia [Unknown]
  - Constipation [Unknown]

NARRATIVE: CASE EVENT DATE: 202001
